FAERS Safety Report 20174150 (Version 1)
Quarter: 2021Q4

REPORT INFORMATION
  Report Type: Spontaneous
  Country: US (occurrence: None)
  Receive Date: 20211213
  Receipt Date: 20211213
  Transmission Date: 20220303
  Serious: Yes (Hospitalization, Other)
  Sender: FDA-Public Use
  Company Number: US-Fosun Pharma USA Inc.-FOS202112-000006

PATIENT
  Age: 49 Year
  Sex: Female

DRUGS (6)
  1. DICYCLOMINE HYDROCHLORIDE [Suspect]
     Active Substance: DICYCLOMINE HYDROCHLORIDE
     Indication: Helicobacter infection
  2. TOBACCO LEAF [Suspect]
     Active Substance: TOBACCO LEAF
     Dosage: TWO CIGARETTES A DAY
  3. TOBACCO LEAF [Suspect]
     Active Substance: TOBACCO LEAF
     Dosage: TOBACCO USAGE INCREASED TO A HALF-PACK PER DAY
  4. CLARITHROMYCIN [Concomitant]
     Active Substance: CLARITHROMYCIN
     Indication: Helicobacter infection
  5. AMOXICILLIN [Concomitant]
     Active Substance: AMOXICILLIN
     Indication: Helicobacter infection
  6. PROTONIX [Concomitant]
     Active Substance: PANTOPRAZOLE SODIUM
     Indication: Helicobacter infection

REACTIONS (2)
  - Pancreatitis acute [Recovered/Resolved]
  - Product use in unapproved indication [Unknown]
